FAERS Safety Report 7291131-X (Version None)
Quarter: 2011Q1

REPORT INFORMATION
  Report Type: 
  Country: None (occurrence: None)
  Receive Date: 20110214
  Receipt Date: 20110210
  Transmission Date: 20110831
  Serious: Yes (Other)
  Sender: FDA-Public Use
  Company Number: US-PFIZER INC-2011030597

PATIENT
  Sex: Female
  Weight: 60.771 kg

DRUGS (3)
  1. AMBRISENTAN [Suspect]
     Indication: PULMONARY HYPERTENSION
     Dosage: UNK
  2. REVATIO [Suspect]
     Indication: PULMONARY HYPERTENSION
     Dosage: 20 MG, 3X/DAY
     Route: 048
  3. URSODIOL [Concomitant]
     Indication: BILIARY CIRRHOSIS
     Dosage: 300 MG, 3X/DAY
     Route: 048

REACTIONS (3)
  - THROMBOSIS [None]
  - EPISTAXIS [None]
  - NASAL CONGESTION [None]
